FAERS Safety Report 5642366-0 (Version None)
Quarter: 2008Q1

REPORT INFORMATION
  Report Type: 
  Country: None (occurrence: None)
  Receive Date: 20080131
  Receipt Date: 20071125
  Transmission Date: 20080703
  Serious: No
  Sender: FDA-Public Use
  Company Number: US200711006016

PATIENT
  Age: 56 Year
  Sex: Female
  Weight: 100.2 kg

DRUGS (17)
  1. BYETTA [Suspect]
     Indication: TYPE 2 DIABETES MELLITUS
     Dosage: 5 UG, 2/D, SUBCUTANEOUS ; 10 UG, 2/D, SUBCUTANEOUS
     Route: 058
     Dates: start: 20051101, end: 20051201
  2. BYETTA [Suspect]
     Indication: TYPE 2 DIABETES MELLITUS
     Dosage: 5 UG, 2/D, SUBCUTANEOUS ; 10 UG, 2/D, SUBCUTANEOUS
     Route: 058
     Dates: start: 20051201
  3. LANTUS [Concomitant]
  4. HUMALOG [Concomitant]
  5. LITHIUM CARBONATE [Concomitant]
  6. TRICOR [Concomitant]
  7. COZAAR [Concomitant]
  8. ZETIA [Concomitant]
  9. FOLIC ACID [Concomitant]
  10. SYNTHROID [Concomitant]
  11. PLAVIX [Concomitant]
  12. ASPIRIN [Concomitant]
  13. COREG [Concomitant]
  14. CLONOPIN [Concomitant]
  15. SEROQUEL [Concomitant]
  16. LIPITOR [Concomitant]
  17. LISINOPRIL [Concomitant]

REACTIONS (3)
  - ASTHENIA [None]
  - FATIGUE [None]
  - PAIN IN EXTREMITY [None]
